FAERS Safety Report 9852899 (Version 1)
Quarter: 2014Q1

REPORT INFORMATION
  Report Type: Spontaneous
  Country: FR (occurrence: FR)
  Receive Date: 20140129
  Receipt Date: 20140129
  Transmission Date: 20141002
  Serious: Yes (Hospitalization, Other)
  Sender: FDA-Public Use
  Company Number: FR-PFIZER INC-2014023753

PATIENT
  Age: 87 Year
  Sex: Male

DRUGS (6)
  1. LYRICA [Suspect]
     Dosage: 50 MG, 3X/DAY
     Route: 048
     Dates: start: 20131024, end: 20131120
  2. LAMALINE [Suspect]
     Dosage: 1 DF, 3X/DAY
     Route: 048
     Dates: start: 20131024, end: 20131120
  3. AMLOR [Concomitant]
     Dosage: 10 MG, DAILY
  4. KARDEGIC [Concomitant]
     Dosage: 160 MG, DAILY
  5. PLAVIX [Concomitant]
     Dosage: 75 MG, DAILY
  6. SIMVASTATIN [Concomitant]
     Dosage: 10 MG, DAILY

REACTIONS (12)
  - Gait disturbance [Recovered/Resolved]
  - Hemiparesis [Unknown]
  - Motor dysfunction [Recovering/Resolving]
  - Presyncope [Unknown]
  - Balance disorder [Unknown]
  - Ataxia [Unknown]
  - Dizziness [Unknown]
  - Abdominal bruit [Unknown]
  - Oedema peripheral [Unknown]
  - Hyporeflexia [Not Recovered/Not Resolved]
  - Atrioventricular block first degree [Unknown]
  - Bundle branch block left [Unknown]
